FAERS Safety Report 4965514-4 (Version None)
Quarter: 2006Q2

REPORT INFORMATION
  Report Type: 
  Country: None (occurrence: None)
  Receive Date: 20060406
  Receipt Date: 20051129
  Transmission Date: 20061013
  Serious: Yes (Hospitalization, Disabling)
  Sender: FDA-Public Use
  Company Number: DE-MERCK-0511DEU00188

PATIENT
  Age: 46 Year
  Sex: Male
  Weight: 98 kg

DRUGS (5)
  1. VIOXX [Suspect]
     Indication: OSTEOARTHRITIS
     Route: 048
     Dates: start: 20000101, end: 20040101
  2. VIOXX [Suspect]
     Route: 048
     Dates: start: 20040129, end: 20040915
  3. OMEPRAZOLE [Concomitant]
     Indication: DUODENAL ULCER
     Route: 048
     Dates: start: 20040129, end: 20060101
  4. LEVOTHYROXINE SODIUM [Concomitant]
     Indication: GOITRE
     Route: 048
     Dates: start: 19930101
  5. TETRAZEPAM [Concomitant]
     Indication: CAUDA EQUINA SYNDROME
     Route: 048
     Dates: start: 20040326, end: 20051121

REACTIONS (11)
  - ADJUSTMENT DISORDER [None]
  - AGITATION [None]
  - APHTHOUS STOMATITIS [None]
  - DEPRESSION [None]
  - DEPRESSIVE DELUSION [None]
  - DISTURBANCE IN ATTENTION [None]
  - HEADACHE [None]
  - IDIOPATHIC THROMBOCYTOPENIC PURPURA [None]
  - INTERVERTEBRAL DISC PROTRUSION [None]
  - SLEEP DISORDER [None]
  - TINNITUS [None]
